FAERS Safety Report 21762178 (Version 1)
Quarter: 2022Q4

REPORT INFORMATION
  Report Type: Spontaneous
  Country: CN (occurrence: CN)
  Receive Date: 20221221
  Receipt Date: 20221221
  Transmission Date: 20230113
  Serious: Yes (Life-Threatening)
  Sender: FDA-Public Use
  Company Number: CN-BAYER-2022A173348

PATIENT
  Age: 76 Year
  Sex: Male
  Weight: 70 kg

DRUGS (3)
  1. ULTRAVIST [Suspect]
     Active Substance: IOPROMIDE
     Indication: Cholelithiasis
     Dosage: 100 ?L, ONCE
     Route: 042
     Dates: start: 20221206, end: 20221206
  2. ULTRAVIST [Suspect]
     Active Substance: IOPROMIDE
     Indication: Lacunar infarction
  3. ULTRAVIST [Suspect]
     Active Substance: IOPROMIDE
     Indication: Computerised tomogram

REACTIONS (8)
  - Hypotension [Recovering/Resolving]
  - Nausea [Recovering/Resolving]
  - Vomiting [Recovering/Resolving]
  - Flushing [Recovering/Resolving]
  - Cold sweat [Recovering/Resolving]
  - Palpitations [None]
  - Hyperhidrosis [None]
  - Tachypnoea [None]

NARRATIVE: CASE EVENT DATE: 20221206
